FAERS Safety Report 6534923-4 (Version None)
Quarter: 2010Q1

REPORT INFORMATION
  Report Type: 
  Country: None (occurrence: None)
  Receive Date: 20100112
  Receipt Date: 20091229
  Transmission Date: 20100710
  Serious: Yes (Other)
  Sender: FDA-Public Use
  Company Number: PHEH2009US18818

PATIENT

DRUGS (1)
  1. AFINITOR [Suspect]
     Dosage: UNK

REACTIONS (2)
  - DYSPHAGIA [None]
  - MUSCLE DISORDER [None]
